FAERS Safety Report 23258742 (Version 1)
Quarter: 2023Q4

REPORT INFORMATION
  Report Type: Spontaneous
  Country: US (occurrence: None)
  Receive Date: 20231202
  Receipt Date: 20231202
  Transmission Date: 20240110
  Serious: No
  Sender: FDA-Public Use
  Company Number: None

PATIENT
  Age: 7 Year
  Sex: Male
  Weight: 18.5 kg

DRUGS (13)
  1. CYCLOPHOSPHAMIDE [Suspect]
     Active Substance: CYCLOPHOSPHAMIDE
     Dates: end: 20220322
  2. CYTARABINE [Suspect]
     Active Substance: CYTARABINE
     Dates: end: 20211020
  3. DEXAMETHASONE [Suspect]
     Active Substance: DEXAMETHASONE
     Dates: end: 20230820
  4. DOXORUBICIN HYDROCHLORIDE [Suspect]
     Active Substance: DOXORUBICIN HYDROCHLORIDE
     Dates: end: 20220308
  5. MERCAPTOPURINE [Suspect]
     Active Substance: MERCAPTOPURINE
     Dates: end: 20231010
  6. METHOTREXATE [Suspect]
     Active Substance: METHOTREXATE
     Dates: end: 20231004
  7. ONCASPAR [Suspect]
     Active Substance: PEGASPARGASE
     Dates: end: 20220225
  8. THIOGUANINE ANHYDROUS [Suspect]
     Active Substance: THIOGUANINE ANHYDROUS
     Dates: end: 20220404
  9. VINCRISTINE SULFATE [Suspect]
     Active Substance: VINCRISTINE SULFATE
     Dates: end: 20230816
  10. FLOVENT [Concomitant]
     Active Substance: FLUTICASONE PROPIONATE
  11. ONDANSETRON [Concomitant]
     Active Substance: ONDANSETRON
  12. SEPTRA [Concomitant]
     Active Substance: SULFAMETHOXAZOLE\TRIMETHOPRIM
  13. VENTOLIN [Concomitant]
     Active Substance: ALBUTEROL SULFATE

REACTIONS (6)
  - Myelodysplastic syndrome [None]
  - Cytogenetic analysis abnormal [None]
  - Disease progression [None]
  - Anaemia [None]
  - Macrocytosis [None]
  - Transfusion [None]

NARRATIVE: CASE EVENT DATE: 20231011
